FAERS Safety Report 14701148 (Version 1)
Quarter: 2018Q1

REPORT INFORMATION
  Report Type: Spontaneous
  Country: US (occurrence: US)
  Receive Date: 20180328
  Receipt Date: 20180328
  Transmission Date: 20180509
  Serious: Yes (Hospitalization)
  Sender: FDA-Public Use
  Company Number: None

PATIENT
  Age: 56 Year
  Sex: Female
  Weight: 70.1 kg

DRUGS (1)
  1. HERCEPTIN [Suspect]
     Active Substance: TRASTUZUMAB
     Indication: BREAST CANCER
     Dosage: Q21DAYS
     Route: 042
     Dates: start: 20180302, end: 20180323

REACTIONS (2)
  - Throat irritation [None]
  - Infusion related reaction [None]

NARRATIVE: CASE EVENT DATE: 20180323
